FAERS Safety Report 25959220 (Version 1)
Quarter: 2025Q4

REPORT INFORMATION
  Report Type: Report from Study
  Country: EU (occurrence: EU)
  Receive Date: 20251025
  Receipt Date: 20251025
  Transmission Date: 20260117
  Serious: Yes (Other)
  Sender: CELLTRION
  Company Number: EU-ROCHE-10000288431

PATIENT

DRUGS (17)
  1. RITUXIMAB [Suspect]
     Active Substance: RITUXIMAB
     Indication: Diffuse large B-cell lymphoma
     Dosage: 700 MG, EVERY 21 DAYS (ON 03-APR-2025, HE RECEIVED HIS MOST RECENT DOSE OF RITUXIMAB (700 MG) PRIOR
     Route: 042
     Dates: start: 20250311
  2. RITUXIMAB [Suspect]
     Active Substance: RITUXIMAB
     Dosage: UNK
     Route: 042
     Dates: start: 20250424
  3. POLATUZUMAB VEDOTIN [Suspect]
     Active Substance: POLATUZUMAB VEDOTIN
     Indication: Diffuse large B-cell lymphoma
     Dosage: 124.2 MG, EVERY 21 DAYS (ON 03-APR-2025, HE RECEIVED HIS MOST RECENT DOSE OF POLATUZUMAB VEDOTIN(124
     Route: 042
     Dates: start: 20250311
  4. POLATUZUMAB VEDOTIN [Suspect]
     Active Substance: POLATUZUMAB VEDOTIN
     Dosage: UNK
     Route: 042
     Dates: start: 20250424
  5. DOXORUBICIN [Suspect]
     Active Substance: DOXORUBICIN
     Indication: Diffuse large B-cell lymphoma
     Dosage: 93 MG, EVERY 21 DAYS (ON 03-APR-2025, HE RECEIVED HIS MOST RECENT DOSE OF DOXORUBICIN (93 MG) PRIOR
     Route: 042
     Dates: start: 20250311
  6. DOXORUBICIN [Suspect]
     Active Substance: DOXORUBICIN
     Dosage: UNK
     Route: 042
     Dates: start: 20250424
  7. CYCLOPHOSPHAMIDE [Suspect]
     Active Substance: CYCLOPHOSPHAMIDE
     Indication: Diffuse large B-cell lymphoma
     Dosage: 1395 MG, EVERY 21 DAYS (ON 03-APR-2025, HE RECEIVED HIS MOST RECENT DOSE OF CYCLOPHOSPHAMIDE (1395 M
     Route: 042
     Dates: start: 20250311
  8. CYCLOPHOSPHAMIDE [Suspect]
     Active Substance: CYCLOPHOSPHAMIDE
     Dosage: UNK
     Route: 042
     Dates: start: 20250424
  9. PREDNISONE [Suspect]
     Active Substance: PREDNISONE
     Indication: Diffuse large B-cell lymphoma
     Dosage: 500 MG, EVERY 21 DAYS (ON 28-APR-2025, HE RECEIVED HIS MOST RECENT DOSE OF PREDNISONE (100 MG) PRIOR
     Route: 048
     Dates: start: 20250311
  10. PANTOPRAZOLE [Concomitant]
     Active Substance: PANTOPRAZOLE
     Dosage: 20 MG
     Dates: start: 20250311
  11. FILGRASTIM [Concomitant]
     Active Substance: FILGRASTIM
     Dosage: UNK, EVERY 7 DAYS
     Dates: start: 20250316
  12. ALLOPURINOL [Concomitant]
     Active Substance: ALLOPURINOL
     Dosage: 300 MG
     Dates: start: 20250311
  13. ONDANSETRON [Concomitant]
     Active Substance: ONDANSETRON
     Dosage: 8 MG
     Dates: start: 20250311
  14. ACYCLOVIR [Concomitant]
     Active Substance: ACYCLOVIR
     Dosage: UNK
     Dates: start: 20250214
  15. BACTRIM [Concomitant]
     Active Substance: SULFAMETHOXAZOLE\TRIMETHOPRIM
     Dosage: 800 MG
     Dates: start: 20250214
  16. ERYTHROPOIETIN [Concomitant]
     Active Substance: ERYTHROPOIETIN
     Dosage: 3000 IU
     Dates: start: 20250402
  17. ASPIRIN LYSINE [Concomitant]
     Active Substance: ASPIRIN LYSINE
     Dosage: UNK
     Dates: start: 2010, end: 20250515

REACTIONS (5)
  - Embolism venous [Not Recovered/Not Resolved]
  - Dysuria [Recovered/Resolved]
  - Oedema peripheral [Recovered/Resolved]
  - Back pain [Recovered/Resolved]
  - Product use issue [Unknown]

NARRATIVE: CASE EVENT DATE: 20250402
